FAERS Safety Report 24558728 (Version 1)
Quarter: 2024Q4

REPORT INFORMATION
  Report Type: Spontaneous
  Country: US (occurrence: US)
  Receive Date: 20241029
  Receipt Date: 20241029
  Transmission Date: 20250115
  Serious: Yes (Hospitalization, Other)
  Sender: REGENERON
  Company Number: US-REGENERON PHARMACEUTICALS, INC.-2024-144552

PATIENT
  Sex: Female

DRUGS (2)
  1. EYLEA [Suspect]
     Active Substance: AFLIBERCEPT
     Indication: Neovascular age-related macular degeneration
     Dosage: UNK, INTO BOTH EYES, FORMULATION: UNKNOWN
     Route: 031
     Dates: start: 2023
  2. EYLEA [Suspect]
     Active Substance: AFLIBERCEPT
     Dosage: UNK, IN LEFT EYE, FORMULATION: UNKNOWN
     Route: 031

REACTIONS (5)
  - Small intestinal obstruction [Unknown]
  - Hernia [Unknown]
  - Dry eye [Unknown]
  - Renal disorder [Unknown]
  - Liver disorder [Unknown]
